FAERS Safety Report 7635074-8 (Version None)
Quarter: 2011Q3

REPORT INFORMATION
  Report Type: 
  Country: None (occurrence: None)
  Receive Date: 20110718
  Receipt Date: 20110701
  Transmission Date: 20111222
  Serious: Yes (Death, Life-Threatening, Hospitalization)
  Sender: FDA-Public Use
  Company Number: AUR-APL-2010-02597

PATIENT
  Age: 59 Year
  Sex: Male

DRUGS (6)
  1. AMITRIPTYLINE HCL [Suspect]
     Indication: PRODUCT USED FOR UNKNOWN INDICATION
     Dosage: 125 MG (125 MG, 1 IN 1 D),
  2. BENDROFLUMETHIAZIDE (BENDROFLUMETHIAZIDE) [Concomitant]
  3. ISOSORBIDE MONONITRATE [Concomitant]
  4. ALPRAZOLAM [Concomitant]
  5. ATENOLOL [Concomitant]
  6. MIRTAZAPINE [Suspect]
     Indication: PRODUCT USED FOR UNKNOWN INDICATION
     Dosage: 60 MG (60 MG, 1 IN 1 D), ORAL
     Route: 048

REACTIONS (18)
  - INTESTINAL DILATATION [None]
  - PYREXIA [None]
  - HEADACHE [None]
  - DRUG INTERACTION [None]
  - MULTI-ORGAN FAILURE [None]
  - METABOLIC ACIDOSIS [None]
  - HEPATIC ENZYME INCREASED [None]
  - SEPSIS [None]
  - AGITATION [None]
  - DYSSTASIA [None]
  - DISSEMINATED INTRAVASCULAR COAGULATION [None]
  - SEROTONIN SYNDROME [None]
  - CEREBELLAR ATROPHY [None]
  - INJURY [None]
  - HEPATIC FAILURE [None]
  - TOXICITY TO VARIOUS AGENTS [None]
  - MYALGIA [None]
  - FATIGUE [None]
